FAERS Safety Report 21147601 (Version 2)
Quarter: 2022Q3

REPORT INFORMATION
  Report Type: Spontaneous
  Country: JP (occurrence: JP)
  Receive Date: 20220729
  Receipt Date: 20220905
  Transmission Date: 20221026
  Serious: No
  Sender: FDA-Public Use
  Company Number: JP-GSK-JP2022JPN110792

PATIENT

DRUGS (13)
  1. SOTROVIMAB [Suspect]
     Active Substance: SOTROVIMAB
     Indication: COVID-19
     Dosage: 500 MG/DAY
     Route: 042
     Dates: start: 20220723, end: 20220723
  2. CLOTRIMAZOLE [Suspect]
     Active Substance: CLOTRIMAZOLE
     Indication: Vulvovaginal candidiasis
     Dosage: 100 MG/DAY
     Dates: start: 20220516, end: 20220520
  3. CLOTRIMAZOLE [Suspect]
     Active Substance: CLOTRIMAZOLE
     Dosage: 100 MG
     Dates: start: 20220729, end: 20220802
  4. CLOTRIMAZOLE [Suspect]
     Active Substance: CLOTRIMAZOLE
     Indication: Vulvovaginal candidiasis
     Dosage: UNK
     Dates: start: 20220516
  5. RITODRINE [Suspect]
     Active Substance: RITODRINE
     Indication: Premature labour
     Dosage: 20 MG/DAY
     Route: 048
     Dates: start: 20220607, end: 20220731
  6. HERBALS [Suspect]
     Active Substance: HERBALS
     Indication: Nasopharyngitis
     Dosage: 7.5 G/DAY
     Route: 048
     Dates: start: 20220712
  7. ZOLPIDEM TARTRATE [Suspect]
     Active Substance: ZOLPIDEM TARTRATE
     Indication: Insomnia
     Dosage: 5 MG/DOSE, WHEN SLEEPLESSNESS OCCURRED
     Route: 048
     Dates: start: 20220712
  8. MAGNESIUM OXIDE [Suspect]
     Active Substance: MAGNESIUM OXIDE
     Indication: Constipation
     Dosage: UNK, ADJUSTED DOSE AS APPROPRIATE
     Route: 048
     Dates: start: 20220721
  9. CALONAL [Suspect]
     Active Substance: ACETAMINOPHEN
     Indication: Pyrexia
     Dosage: 400 MG/DOSE, WHEN PYREXIA OCCURRED
     Route: 048
     Dates: start: 20220721
  10. HERBALS [Suspect]
     Active Substance: HERBALS
     Indication: Rhinorrhoea
     Dosage: 9 G/DAY
     Route: 048
     Dates: start: 20220722
  11. DEXTROMETHORPHAN HYDROBROMIDE [Suspect]
     Active Substance: DEXTROMETHORPHAN HYDROBROMIDE
     Indication: Antitussive therapy
     Dosage: 90 MG/DAY
     Route: 048
     Dates: start: 20220726
  12. PL [Suspect]
     Active Substance: ACETAMINOPHEN\CAFFEINE\PROMETHAZINE\SALICYLAMIDE
     Indication: Nasopharyngitis
     Dosage: 3 G/DAY
     Route: 048
     Dates: start: 20220726
  13. CARBOCYSTEINE [Suspect]
     Active Substance: CARBOCYSTEINE
     Indication: Productive cough
     Dosage: 1500 MG/DAY
     Route: 048
     Dates: start: 20220726

REACTIONS (2)
  - Caesarean section [Unknown]
  - Exposure during pregnancy [Unknown]

NARRATIVE: CASE EVENT DATE: 20220801
